FAERS Safety Report 17711974 (Version 3)
Quarter: 2020Q2

REPORT INFORMATION
  Report Type: Spontaneous
  Country: US (occurrence: US)
  Receive Date: 20200427
  Receipt Date: 20200512
  Transmission Date: 20200714
  Serious: Yes (Other)
  Sender: FDA-Public Use
  Company Number: US-PFIZER INC-2020166404

PATIENT
  Age: 37 Year
  Sex: Female
  Weight: 60.33 kg

DRUGS (15)
  1. IBUDONE [Concomitant]
     Active Substance: HYDROCODONE BITARTRATE\IBUPROFEN
     Indication: SOMATIC DYSFUNCTION
     Dosage: UNK
     Dates: start: 2016, end: 201909
  2. IBUPROFEN. [Concomitant]
     Active Substance: IBUPROFEN
     Indication: SOMATIC DYSFUNCTION
     Dosage: 400 MG, 2X/DAY
     Dates: start: 19970213
  3. IBUPROFEN. [Concomitant]
     Active Substance: IBUPROFEN
     Indication: MYOSITIS
  4. IBUPROFEN. [Concomitant]
     Active Substance: IBUPROFEN
     Indication: TEMPOROMANDIBULAR JOINT SYNDROME
  5. SOMA [Concomitant]
     Active Substance: CARISOPRODOL
     Indication: SOMATIC DYSFUNCTION
     Dosage: 250 MG, 2X/DAY
     Dates: start: 1997
  6. IBUDONE [Concomitant]
     Active Substance: HYDROCODONE BITARTRATE\IBUPROFEN
     Indication: TEMPOROMANDIBULAR JOINT SYNDROME
  7. SOMA [Concomitant]
     Active Substance: CARISOPRODOL
     Indication: MUSCLE SPASMS
  8. IBUDONE [Concomitant]
     Active Substance: HYDROCODONE BITARTRATE\IBUPROFEN
     Indication: OSTEOARTHRITIS
  9. IBUPROFEN. [Concomitant]
     Active Substance: IBUPROFEN
     Indication: MIGRAINE
  10. XANAX [Suspect]
     Active Substance: ALPRAZOLAM
     Indication: TEMPOROMANDIBULAR JOINT SYNDROME
     Dosage: 2 MG, FOUR TIMES A DAY
     Route: 048
  11. XANAX [Suspect]
     Active Substance: ALPRAZOLAM
     Indication: OSTEOARTHRITIS
     Dosage: 3 MG, DAILY (HALF A TABLET DAILY AND 1 TABLET AT NIGHT)
     Route: 048
  12. XANAX [Suspect]
     Active Substance: ALPRAZOLAM
     Indication: MIGRAINE
  13. IBUDONE [Concomitant]
     Active Substance: HYDROCODONE BITARTRATE\IBUPROFEN
     Indication: MYOSITIS
  14. IBUDONE [Concomitant]
     Active Substance: HYDROCODONE BITARTRATE\IBUPROFEN
     Indication: MIGRAINE
  15. IBUPROFEN. [Concomitant]
     Active Substance: IBUPROFEN
     Indication: OSTEOARTHRITIS

REACTIONS (5)
  - Road traffic accident [Unknown]
  - Jaw fracture [Unknown]
  - Product use in unapproved indication [Unknown]
  - Neck injury [Unknown]
  - Off label use [Unknown]

NARRATIVE: CASE EVENT DATE: 19970213
